FAERS Safety Report 24584846 (Version 1)
Quarter: 2024Q4

REPORT INFORMATION
  Report Type: Spontaneous
  Country: US (occurrence: None)
  Receive Date: 20241106
  Receipt Date: 20241106
  Transmission Date: 20250114
  Serious: Yes (Death)
  Sender: Public
  Company Number: None

PATIENT
  Age: 88 Year
  Sex: Female

DRUGS (1)
  1. CAPECITABINE [Suspect]
     Active Substance: CAPECITABINE
     Indication: Rectal cancer
     Dosage: OTHER FREQUENCY : BID DAYS1-14OUTOF21DAYCYCLE;?
     Route: 048
     Dates: start: 20240528

REACTIONS (1)
  - Death [None]

NARRATIVE: CASE EVENT DATE: 20241019
